FAERS Safety Report 8440391 (Version 4)
Quarter: 2013Q1

REPORT INFORMATION
  Report Type: Report from Study
  Country: NL (occurrence: NL)
  Receive Date: 20120305
  Receipt Date: 20130306
  Transmission Date: 20140127
  Serious: Yes (Other)
  Sender: FDA-Public Use
  Company Number: NL-JNJFOC-20120203659

PATIENT
  Sex: Male
  Weight: 89 kg

DRUGS (10)
  1. ABIRATERONE ACETATE [Suspect]
     Route: 048
  2. ABIRATERONE ACETATE [Suspect]
     Indication: PROSTATE CANCER METASTATIC
     Route: 048
     Dates: start: 20111206, end: 20120128
  3. PREDNISONE [Concomitant]
     Indication: PROSTATE CANCER METASTATIC
     Route: 065
  4. ACENOCOUMAROL [Concomitant]
     Route: 065
  5. METOPROLOL [Concomitant]
     Route: 065
  6. PERINDOPRIL [Concomitant]
     Route: 065
  7. PANTOZOL [Concomitant]
     Route: 065
  8. TAMSULOSIN [Concomitant]
     Route: 065
  9. ZOLADEX [Concomitant]
     Route: 065
  10. PAMIDRONATE [Concomitant]
     Route: 065

REACTIONS (2)
  - Bone pain [Recovering/Resolving]
  - Prostate cancer [Not Recovered/Not Resolved]
